FAERS Safety Report 7361107-2 (Version None)
Quarter: 2011Q1

REPORT INFORMATION
  Report Type: 
  Country: None (occurrence: None)
  Receive Date: 20110315
  Receipt Date: 20110315
  Transmission Date: 20110831
  Serious: Yes (Other)
  Sender: FDA-Public Use
  Company Number: None

PATIENT
  Sex: Male
  Weight: 74.8435 kg

DRUGS (3)
  1. PRADAXA 150 MG, BOEHRINGER INGELHEIR [Suspect]
     Indication: AORTIC VALVE REPLACEMENT
     Dosage: 150 MG. TWICE DAILY
     Dates: start: 20110119
  2. PRADAXA 150 MG, BOEHRINGER INGELHEIR [Suspect]
     Indication: AORTIC VALVE REPLACEMENT
     Dosage: 150 MG. TWICE DAILY
     Dates: start: 20110121
  3. PRADAXA 150 MG, BOEHRINGER INGELHEIR [Suspect]
     Indication: AORTIC VALVE REPLACEMENT
     Dosage: 150 MG. TWICE DAILY
     Dates: start: 20110120

REACTIONS (3)
  - DIZZINESS [None]
  - VISION BLURRED [None]
  - PRURITUS GENERALISED [None]
